FAERS Safety Report 8554346-6 (Version None)
Quarter: 2012Q3

REPORT INFORMATION
  Report Type: 
  Country: None (occurrence: None)
  Receive Date: 20120731
  Receipt Date: 20120723
  Transmission Date: 20120928
  Serious: Yes (Hospitalization, Other)
  Sender: FDA-Public Use
  Company Number: US-009507513-1207USA009851

PATIENT

DRUGS (4)
  1. SALUTEC [Concomitant]
  2. ZOCOR [Suspect]
     Dosage: 80 MG, UNK
     Route: 048
  3. METOPROLOL TARTRATE [Concomitant]
  4. TREDAPTIVE [Suspect]
     Dosage: 1000MG/20 MG
     Route: 048

REACTIONS (2)
  - HEPATIC FAILURE [None]
  - RHABDOMYOLYSIS [None]
